FAERS Safety Report 5922633-3 (Version None)
Quarter: 2008Q4

REPORT INFORMATION
  Report Type: 
  Country: None (occurrence: None)
  Receive Date: 20081017
  Receipt Date: 20081002
  Transmission Date: 20090506
  Serious: Yes (Other)
  Sender: FDA-Public Use
  Company Number: US-JNJFOC-20081001254

PATIENT
  Age: 81 Year
  Sex: Male
  Weight: 86.18 kg

DRUGS (6)
  1. EXTRA STRENGTH TYLENOL [Suspect]
     Indication: INSOMNIA
     Route: 048
  2. SIMVASTATIN [Concomitant]
  3. ADALAT [Concomitant]
  4. DYAZIDE [Concomitant]
  5. PLAVIX [Concomitant]
  6. BENICAR [Concomitant]

REACTIONS (2)
  - DEPENDENCE [None]
  - INSOMNIA [None]
